FAERS Safety Report 11099685 (Version 2)
Quarter: 2015Q2

REPORT INFORMATION
  Report Type: Spontaneous
  Country: FR (occurrence: FR)
  Receive Date: 20150508
  Receipt Date: 20150515
  Transmission Date: 20150821
  Serious: Yes (Death, Life-Threatening, Other)
  Sender: FDA-Public Use
  Company Number: FR-PFIZER INC-2015155303

PATIENT
  Age: 93 Year
  Sex: Female

DRUGS (14)
  1. FLAGYL [Concomitant]
     Active Substance: METRONIDAZOLE\METRONIDAZOLE HYDROCHLORIDE
     Dates: end: 20130222
  2. KARDEGIC [Concomitant]
     Active Substance: ASPIRIN LYSINE
  3. MONOTILDIEM [Concomitant]
     Active Substance: DILTIAZEM
     Dosage: 300 MG, UNK
     Dates: end: 20130211
  4. TEMERIT [Concomitant]
     Active Substance: NEBIVOLOL
     Dosage: 2.5 MG, UNK
  5. INEXIUM [Concomitant]
     Active Substance: ESOMEPRAZOLE
     Dosage: 40 MG, UNK
  6. LOXEN [Concomitant]
     Active Substance: NICARDIPINE HYDROCHLORIDE
     Dates: start: 20130211
  7. RASILEZ [Concomitant]
     Active Substance: ALISKIREN
  8. PERFALGAN [Concomitant]
     Active Substance: ACETAMINOPHEN
  9. ASPEGIC [Concomitant]
     Active Substance: ASPIRIN DL-LYSINE
     Dosage: 100 MG, UNK
  10. LAROXYL [Concomitant]
     Active Substance: AMITRIPTYLINE
  11. MORPHINE [Concomitant]
     Active Substance: MORPHINE
     Indication: PAIN
  12. CALCIPARINE [Concomitant]
     Active Substance: HEPARIN CALCIUM
  13. ATENOLOL. [Suspect]
     Active Substance: ATENOLOL
     Dosage: 2.5 MG, DAILY, 5 MG/10 ML
     Route: 042
     Dates: start: 20130218, end: 20130228
  14. TEMESTA [Concomitant]
     Active Substance: LORAZEPAM

REACTIONS (7)
  - Metabolic acidosis [Unknown]
  - Bradycardia [Fatal]
  - Leukocytosis [Unknown]
  - Sepsis [Unknown]
  - Cardiac failure [Unknown]
  - Anaemia [Unknown]
  - Renal failure [Unknown]

NARRATIVE: CASE EVENT DATE: 20130227
